FAERS Safety Report 20230639 (Version 1)
Quarter: 2021Q4

REPORT INFORMATION
  Report Type: Spontaneous
  Country: CA (occurrence: CA)
  Receive Date: 20211227
  Receipt Date: 20211227
  Transmission Date: 20220303
  Serious: Yes (Other)
  Sender: FDA-Public Use
  Company Number: CA-JNJFOC-20211247682

PATIENT
  Age: 23 Year
  Sex: Female
  Weight: 58 kg

DRUGS (1)
  1. REMICADE [Suspect]
     Active Substance: INFLIXIMAB
     Indication: Psoriatic arthropathy
     Route: 042

REACTIONS (7)
  - Swelling face [Unknown]
  - Abdominal discomfort [Unknown]
  - Chills [Unknown]
  - Feeling cold [Unknown]
  - Flushing [Unknown]
  - Nausea [Unknown]
  - Fatigue [Unknown]
